FAERS Safety Report 6425772-6 (Version None)
Quarter: 2009Q4

REPORT INFORMATION
  Report Type: 
  Country: None (occurrence: None)
  Receive Date: 20091103
  Receipt Date: 20091022
  Transmission Date: 20100525
  Serious: Yes (Death, Life-Threatening, Hospitalization)
  Sender: FDA-Public Use
  Company Number: GB-MERCK-0910GBR00013

PATIENT
  Age: 44 Year
  Sex: Male

DRUGS (3)
  1. COZAAR [Suspect]
     Route: 048
  2. ALFENTANIL HYDROCHLORIDE [Concomitant]
     Route: 065
  3. PROPOFOL [Concomitant]
     Route: 065

REACTIONS (11)
  - ANGIOEDEMA [None]
  - CARDIAC ARREST [None]
  - CONVULSION [None]
  - ENDOTRACHEAL INTUBATION [None]
  - GRAND MAL CONVULSION [None]
  - MYOCLONUS [None]
  - OBSTRUCTIVE AIRWAYS DISORDER [None]
  - PNEUMONIA [None]
  - POST-ANOXIC MYOCLONUS [None]
  - PULSE ABSENT [None]
  - RESPIRATORY DISTRESS [None]
